FAERS Safety Report 4815456-X (Version None)
Quarter: 2005Q4

REPORT INFORMATION
  Report Type: 
  Country: None (occurrence: None)
  Receive Date: 20051028
  Receipt Date: 20051028
  Transmission Date: 20060501
  Serious: Yes (Hospitalization)
  Sender: FDA-Public Use
  Company Number: None

PATIENT

DRUGS (5)
  1. ABILIFY [Suspect]
     Indication: MENTAL DISORDER
     Dosage: 10 MG PO BID
     Route: 048
     Dates: start: 20051001, end: 20051010
  2. ADDERALL 10 [Concomitant]
  3. CLONIDINE [Concomitant]
  4. SEROQUEL [Concomitant]
  5. ALBUTEROL [Concomitant]

REACTIONS (7)
  - COGWHEEL RIGIDITY [None]
  - EXTRAOCULAR MUSCLE DISORDER [None]
  - EXTRAPYRAMIDAL DISORDER [None]
  - FAECAL INCONTINENCE [None]
  - MUSCULOSKELETAL STIFFNESS [None]
  - TORTICOLLIS [None]
  - URINARY INCONTINENCE [None]
